FAERS Safety Report 8803421 (Version 1)
Quarter: 2012Q4

REPORT INFORMATION
  Report Type: 
  Country: US (occurrence: US)
  Receive Date: 20120924
  Receipt Date: 20120924
  Transmission Date: 20130627
  Serious: Yes (Other)
  Sender: FDA-Public Use
  Company Number: US-TEVA-360464USA

PATIENT
  Sex: Male

DRUGS (1)
  1. TRAMADOL [Suspect]

REACTIONS (3)
  - Convulsion [Unknown]
  - Drug level increased [Unknown]
  - Somnolence [Unknown]
